FAERS Safety Report 9793292 (Version 2)
Quarter: 2014Q1

REPORT INFORMATION
  Report Type: Spontaneous
  Country: US (occurrence: US)
  Receive Date: 20140102
  Receipt Date: 20140226
  Transmission Date: 20141002
  Serious: No
  Sender: FDA-Public Use
  Company Number: US-PFIZER INC-2013373247

PATIENT
  Sex: Female

DRUGS (7)
  1. MORPHINE SULFATE [Suspect]
     Dosage: UNK
  2. RAMIPRIL [Suspect]
     Dosage: UNK
  3. SULFADIAZINE SILVER [Suspect]
     Dosage: UNK
  4. CALAN [Suspect]
     Dosage: UNK
  5. PREDNISONE [Suspect]
     Dosage: UNK
  6. HEPATITIS B VACCINE [Suspect]
     Dosage: UNK
  7. MAXZIDE [Suspect]
     Dosage: UNK

REACTIONS (1)
  - Drug hypersensitivity [Unknown]
